FAERS Safety Report 4399550-6 (Version None)
Quarter: 2004Q3

REPORT INFORMATION
  Report Type: 
  Country: None (occurrence: None)
  Receive Date: 20040716
  Receipt Date: 20040705
  Transmission Date: 20050211
  Serious: Yes (Life-Threatening)
  Sender: FDA-Public Use
  Company Number: JP-GLAXOSMITHKLINE-B0338066A

PATIENT
  Age: 49 Year
  Sex: Male

DRUGS (7)
  1. FLOLAN [Suspect]
     Indication: PULMONARY HYPERTENSION
     Route: 042
     Dates: start: 19990506
  2. WARFARIN POTASSIUM [Concomitant]
     Route: 048
  3. FUROSEMIDE [Concomitant]
     Route: 048
  4. SPIRONOLACTONE [Concomitant]
     Route: 048
  5. PURSENNID [Concomitant]
     Route: 048
  6. URINORM [Concomitant]
     Route: 048
  7. HALCION [Concomitant]
     Route: 048

REACTIONS (1)
  - CATHETER RELATED COMPLICATION [None]
